FAERS Safety Report 25736635 (Version 1)
Quarter: 2025Q3

REPORT INFORMATION
  Report Type: Spontaneous
  Country: US (occurrence: None)
  Receive Date: 20250828
  Receipt Date: 20250828
  Transmission Date: 20251021
  Serious: Yes (Death)
  Sender: FDA-CTU
  Company Number: None

PATIENT
  Age: 83 Year
  Sex: Female

DRUGS (8)
  1. REPATHA [Suspect]
     Active Substance: EVOLOCUMAB
     Indication: Hyperlipidaemia
     Dates: start: 20220622, end: 20250828
  2. ELIQUIS [Concomitant]
     Active Substance: APIXABAN
     Dates: end: 20250828
  3. DIGOXIN [Concomitant]
     Active Substance: DIGOXIN
     Dates: end: 20250828
  4. HYDROCHLOROTHIAZIDE [Concomitant]
     Active Substance: HYDROCHLOROTHIAZIDE
     Dates: end: 20250828
  5. metoprolol er succinate 50 mg [Concomitant]
     Dates: end: 20250828
  6. VITAMINS [Concomitant]
     Active Substance: VITAMINS
     Dates: end: 20250828
  7. PLAVIX [Concomitant]
     Active Substance: CLOPIDOGREL BISULFATE
     Dates: end: 20250828
  8. zetia 10 mg [Concomitant]
     Dates: end: 20250828

REACTIONS (1)
  - Death [None]
